FAERS Safety Report 20198601 (Version 1)
Quarter: 2021Q4

REPORT INFORMATION
  Report Type: Spontaneous
  Country: US (occurrence: None)
  Receive Date: 20211216
  Receipt Date: 20211216
  Transmission Date: 20220303
  Serious: Yes (Other)
  Sender: FDA-Public Use
  Company Number: None

PATIENT
  Age: 65 Year
  Sex: Female
  Weight: 64.08 kg

DRUGS (4)
  1. LAMOTRIGINE [Suspect]
     Active Substance: LAMOTRIGINE
     Indication: Seizure
     Dosage: FREQUENCY : DAILY;?
     Route: 048
     Dates: start: 20210929, end: 20211005
  2. AMLODIPINE [Concomitant]
     Active Substance: AMLODIPINE BESYLATE
  3. CLONIDINE [Concomitant]
     Active Substance: CLONIDINE
  4. LOPERAMIDE [Concomitant]
     Active Substance: LOPERAMIDE

REACTIONS (8)
  - Anxiety [None]
  - Insomnia [None]
  - Restlessness [None]
  - Drooling [None]
  - Dysphagia [None]
  - Headache [None]
  - Condition aggravated [None]
  - Therapy non-responder [None]

NARRATIVE: CASE EVENT DATE: 20210929
